FAERS Safety Report 5252752-9 (Version None)
Quarter: 2007Q1

REPORT INFORMATION
  Report Type: 
  Country: None (occurrence: None)
  Receive Date: 20070301
  Receipt Date: 20061127
  Transmission Date: 20070707
  Serious: No
  Sender: FDA-Public Use
  Company Number: US-GLAXOSMITHKLINE-A0628701A

PATIENT
  Age: 46 Year
  Sex: Female

DRUGS (6)
  1. LAMICTAL [Suspect]
     Indication: ANXIETY
     Dosage: 100MG PER DAY
     Route: 048
  2. BYETTA [Suspect]
     Dosage: 5MG PER DAY
     Dates: start: 20060701
  3. ATENOLOL [Concomitant]
  4. CAPTOPRIL [Concomitant]
  5. METFORMIN HCL [Concomitant]
  6. LEXAPRO [Concomitant]

REACTIONS (1)
  - ALOPECIA [None]
